FAERS Safety Report 10165752 (Version 1)
Quarter: 2014Q2

REPORT INFORMATION
  Report Type: Spontaneous
  Country: US (occurrence: US)
  Receive Date: 20140510
  Receipt Date: 20140510
  Transmission Date: 20141212
  Serious: No
  Sender: FDA-Public Use
  Company Number: US-BRISTOL-MYERS SQUIBB COMPANY-19925544

PATIENT
  Age: 70 Year
  Sex: Female
  Weight: 122.45 kg

DRUGS (6)
  1. BYDUREON  2MG SUSPENSION [Suspect]
     Indication: TYPE 2 DIABETES MELLITUS
     Route: 058
     Dates: start: 20131215
  2. BUMETANIDE [Concomitant]
  3. METFORMIN [Concomitant]
  4. GLIPIZIDE [Concomitant]
  5. METOPROLOL [Concomitant]
  6. LISINOPRIL [Concomitant]

REACTIONS (5)
  - Diarrhoea [Unknown]
  - Injection site pain [Unknown]
  - Injection site pain [Unknown]
  - Injection site pain [Unknown]
  - Incorrect product storage [Unknown]
